FAERS Safety Report 5570304-8 (Version None)
Quarter: 2007Q4

REPORT INFORMATION
  Report Type: 
  Country: None (occurrence: None)
  Receive Date: 20071219
  Receipt Date: 20071219
  Transmission Date: 20080405
  Serious: Yes (Death, Hospitalization)
  Sender: FDA-Public Use
  Company Number: None

PATIENT
  Sex: Male
  Weight: 63 kg

DRUGS (11)
  1. CYCLOPHOSPHAMIDE [Suspect]
     Dosage: 5280 MG
  2. CYTARABINE [Suspect]
     Dosage: 3246 MG
  3. DAUNORUBICIN HCL [Suspect]
     Dosage: 172 MG
  4. DEXAMETHASONE TAB [Suspect]
     Dosage: 252 MG
  5. DOXORUBICIN HYDROCHLORIDE [Suspect]
     Dosage: 135 MG
  6. MERCAPTOPURINE [Suspect]
     Dosage: 5908 MG
  7. METHOTREXATE [Suspect]
     Dosage: 34035 MG
  8. PEG-L- ASPARAGINASE (K-H) [Suspect]
     Dosage: 21950 IU
  9. PREDNISONE TAB [Suspect]
     Dosage: 2800 MG
  10. THIOGUANINE [Suspect]
     Dosage: 700 MG
  11. VINCRISTINE SULFATE [Suspect]
     Dosage: 34 MG

REACTIONS (14)
  - ACUTE RESPIRATORY DISTRESS SYNDROME [None]
  - ANAEMIA [None]
  - ARRHYTHMIA [None]
  - BRADYCARDIA [None]
  - CARDIO-RESPIRATORY ARREST [None]
  - HYPOTENSION [None]
  - PANCYTOPENIA [None]
  - PULMONARY OEDEMA [None]
  - RESPIRATORY FAILURE [None]
  - SEPSIS [None]
  - SHOCK [None]
  - STAPHYLOCOCCAL INFECTION [None]
  - SUPRAVENTRICULAR EXTRASYSTOLES [None]
  - TACHYCARDIA [None]
